FAERS Safety Report 6436188-0 (Version None)
Quarter: 2009Q4

REPORT INFORMATION
  Report Type: 
  Country: None (occurrence: None)
  Receive Date: 20091111
  Receipt Date: 20091104
  Transmission Date: 20100525
  Serious: Yes (Other)
  Sender: FDA-Public Use
  Company Number: US-ROCHE-667427

PATIENT
  Sex: Female
  Weight: 82.6 kg

DRUGS (10)
  1. BONIVA [Suspect]
     Indication: OSTEOPOROSIS
     Dosage: FREQUENCY: X 1 DOSE
     Route: 048
     Dates: start: 20091001
  2. LASIX [Concomitant]
  3. KLOR-CON [Concomitant]
  4. ALLOPURINOL [Concomitant]
  5. NIFEDIPINE [Concomitant]
  6. METFORMIN [Concomitant]
  7. GLIMEPIRIDE [Concomitant]
  8. OMEPRAZOLE [Concomitant]
     Dosage: DOSE: PRN
  9. CEREBREX [Concomitant]
  10. METOPROLOL [Concomitant]

REACTIONS (6)
  - ARTHRALGIA [None]
  - BACK PAIN [None]
  - DYSPHAGIA [None]
  - GAIT DISTURBANCE [None]
  - MYALGIA [None]
  - PAIN IN EXTREMITY [None]
